FAERS Safety Report 16552640 (Version 2)
Quarter: 2019Q3

REPORT INFORMATION
  Report Type: Report from Study
  Country: MX (occurrence: MX)
  Receive Date: 20190710
  Receipt Date: 20190812
  Transmission Date: 20191004
  Serious: No
  Sender: FDA-Public Use
  Company Number: PHHY2019MX159096

PATIENT
  Sex: Female
  Weight: 55 kg

DRUGS (6)
  1. GALVUS MET [Suspect]
     Active Substance: METFORMIN HYDROCHLORIDE\VILDAGLIPTIN
     Indication: DIABETES MELLITUS
     Dosage: 1 DF, BID (METFORMIN 850 MG, VILDAGLIPTIN 50 MG)
     Route: 048
     Dates: start: 201905
  2. IRON [Concomitant]
     Active Substance: IRON
     Indication: PRODUCT USED FOR UNKNOWN INDICATION
     Route: 065
  3. ZOLTUM [Concomitant]
     Indication: PRODUCT USED FOR UNKNOWN INDICATION
     Dosage: 1 DF, QD
     Route: 065
     Dates: start: 201905, end: 20190727
  4. AFUNGIL [Concomitant]
     Indication: PRODUCT USED FOR UNKNOWN INDICATION
     Dosage: 1 DF, QW
     Route: 048
     Dates: start: 201905, end: 20190727
  5. KARET [Concomitant]
     Indication: PRODUCT USED FOR UNKNOWN INDICATION
     Dosage: 0.25 DF, QD
     Route: 048
     Dates: start: 201905
  6. KARET [Concomitant]
     Dosage: 0.5 DF, QD
     Route: 048
     Dates: end: 20190727

REACTIONS (2)
  - Decreased appetite [Not Recovered/Not Resolved]
  - Emotional disorder [Unknown]
